FAERS Safety Report 17605847 (Version 3)
Quarter: 2020Q2

REPORT INFORMATION
  Report Type: Spontaneous
  Country: US (occurrence: US)
  Receive Date: 20200331
  Receipt Date: 20200413
  Transmission Date: 20200713
  Serious: No
  Sender: FDA-Public Use
  Company Number: US-PFIZER INC-2020127627

PATIENT
  Age: 34 Year
  Sex: Male
  Weight: 85.71 kg

DRUGS (4)
  1. CLONAZEPAM. [Concomitant]
     Active Substance: CLONAZEPAM
     Dosage: 1 MG, UNK
     Dates: start: 2016
  2. RELPAX [Suspect]
     Active Substance: ELETRIPTAN HYDROBROMIDE
     Indication: MIGRAINE
     Dosage: 40 MG, UNK
     Dates: start: 201907, end: 201910
  3. MINOCYCLINE [Concomitant]
     Active Substance: MINOCYCLINE HYDROCHLORIDE
     Dosage: 50 MG, UNK
     Dates: start: 201909
  4. ADDERALL [Concomitant]
     Active Substance: AMPHETAMINE ASPARTATE\AMPHETAMINE SULFATE\DEXTROAMPHETAMINE SACCHARATE\DEXTROAMPHETAMINE SULFATE
     Dosage: UNK
     Dates: start: 2017

REACTIONS (9)
  - Recalled product administered [Recovered/Resolved]
  - Impaired work ability [Unknown]
  - Injury [Unknown]
  - Anxiety [Unknown]
  - Mental disorder [Unknown]
  - Ill-defined disorder [Unknown]
  - Infection [Unknown]
  - Malaise [Unknown]
  - Emotional disorder [Unknown]

NARRATIVE: CASE EVENT DATE: 201908
